FAERS Safety Report 4517145-8 (Version None)
Quarter: 2004Q4

REPORT INFORMATION
  Report Type: 
  Country: None (occurrence: None)
  Receive Date: 20041130
  Receipt Date: 20041111
  Transmission Date: 20050328
  Serious: Yes (Hospitalization)
  Sender: FDA-Public Use
  Company Number: DE_041114686

PATIENT
  Age: 71 Year
  Sex: Female
  Weight: 69 kg

DRUGS (7)
  1. GEMZAR [Suspect]
     Indication: OVARIAN CANCER
     Dosage: 1424 MG
     Dates: start: 20030902
  2. PACLITAXEL [Suspect]
     Indication: OVARIAN CANCER
     Dosage: 311 MG
     Dates: start: 20030902
  3. CARBOPLATIN [Suspect]
     Indication: OVARIAN CANCER
     Dosage: 456 MG
     Dates: start: 20040902
  4. DEXAMETHASONE [Concomitant]
  5. NAVOBAN (TROPISETRON HYDROCHLORIDE) [Concomitant]
  6. FENISTIL (DIMETINDENE MALEATE) [Concomitant]
  7. SOSTRIL (RANITIDINE HYDROCHLORIDE) [Concomitant]

REACTIONS (4)
  - EXCESSIVE GRANULATION TISSUE [None]
  - INJECTION SITE PAIN [None]
  - OEDEMA PERIPHERAL [None]
  - PAIN IN EXTREMITY [None]
